FAERS Safety Report 8275557-3 (Version None)
Quarter: 2012Q2

REPORT INFORMATION
  Report Type: 
  Country: None (occurrence: None)
  Receive Date: 20120412
  Receipt Date: 20120406
  Transmission Date: 20120825
  Serious: Yes (Hospitalization, Other)
  Sender: FDA-Public Use
  Company Number: US-AMGEN-USASP2012018224

PATIENT
  Age: 57 Year
  Sex: Female
  Weight: 50.34 kg

DRUGS (2)
  1. ANALGESICS [Concomitant]
     Indication: PAIN
  2. PROLIA [Suspect]
     Indication: OSTEOPOROSIS POSTMENOPAUSAL
     Dosage: 60 MG, Q6MO
     Route: 058
     Dates: start: 20110816

REACTIONS (2)
  - CHOLANGITIS [None]
  - PANCREATITIS [None]
